FAERS Safety Report 4917167-9 (Version None)
Quarter: 2006Q1

REPORT INFORMATION
  Report Type: 
  Country: None (occurrence: None)
  Receive Date: 20060221
  Receipt Date: 20060209
  Transmission Date: 20060701
  Serious: Yes (Hospitalization)
  Sender: FDA-Public Use
  Company Number: FR-AVENTIS-200610533FR

PATIENT
  Age: 23 Year
  Sex: Male

DRUGS (6)
  1. DOLIPRANE [Suspect]
     Route: 048
     Dates: start: 20051224, end: 20060102
  2. GARDENALE [Suspect]
     Indication: EPILEPSY
     Route: 048
     Dates: start: 20051217, end: 20051220
  3. GARDENALE [Suspect]
     Route: 048
     Dates: start: 20051222, end: 20051225
  4. GARDENALE [Suspect]
     Route: 048
     Dates: start: 20051228, end: 20060106
  5. LOVENOX [Suspect]
     Route: 058
     Dates: start: 20051219, end: 20051221
  6. LOVENOX [Suspect]
     Route: 058
     Dates: start: 20060102, end: 20060114

REACTIONS (6)
  - AGRANULOCYTOSIS [None]
  - CYTOLYTIC HEPATITIS [None]
  - HYPERTHERMIA [None]
  - NEUTROPENIA [None]
  - RASH VESICULAR [None]
  - STAPHYLOCOCCAL INFECTION [None]
